FAERS Safety Report 10409277 (Version 1)
Quarter: 2014Q2

REPORT INFORMATION
  Report Type: Spontaneous
  Country: US (occurrence: None)
  Receive Date: 20140604
  Receipt Date: 20140604
  Transmission Date: 20141212
  Serious: Yes (Other)
  Sender: FDA-Public Use
  Company Number: 163-POMAL-14031626

PATIENT
  Age: 51 Year
  Sex: Male

DRUGS (3)
  1. POMALYST (POMALIDOMIDE) (4 MILLIGRAM, CAPSULES) [Suspect]
     Indication: PLASMA CELL MYELOMA
     Route: 048
     Dates: start: 201308
  2. TUMS (CALCIUM CARBONATE) [Concomitant]
  3. MULTIVITAMINS (MULTIVITAMINS) [Concomitant]

REACTIONS (7)
  - Vision blurred [None]
  - Musculoskeletal pain [None]
  - Insomnia [None]
  - Back pain [None]
  - Neuropathy peripheral [None]
  - Constipation [None]
  - Fatigue [None]
